FAERS Safety Report 7277502-6 (Version None)
Quarter: 2011Q1

REPORT INFORMATION
  Report Type: 
  Country: None (occurrence: None)
  Receive Date: 20110207
  Receipt Date: 20110125
  Transmission Date: 20110831
  Serious: Yes (Hospitalization, Other)
  Sender: FDA-Public Use
  Company Number: US-ELI_LILLY_AND_COMPANY-US201004002951

PATIENT
  Sex: Female

DRUGS (1)
  1. FORTEO [Suspect]
     Indication: OSTEOPOROSIS
     Dosage: 20 UG, DAILY (1/D)
     Dates: start: 20100201

REACTIONS (7)
  - INJECTION SITE PAIN [None]
  - HIP FRACTURE [None]
  - FEMORAL ARTERY OCCLUSION [None]
  - ILIAC ARTERY OCCLUSION [None]
  - SKIN CANCER [None]
  - GANGRENE [None]
  - FALL [None]
